FAERS Safety Report 4830291-4 (Version None)
Quarter: 2005Q4

REPORT INFORMATION
  Report Type: 
  Country: None (occurrence: None)
  Receive Date: 20051115
  Receipt Date: 20051104
  Transmission Date: 20060501
  Serious: Yes (Hospitalization)
  Sender: FDA-Public Use
  Company Number: 2005152478

PATIENT
  Sex: Male
  Weight: 69 kg

DRUGS (1)
  1. ATARAX [Suspect]
     Indication: ANXIETY
     Dosage: 25 MG (ONCE), ORAL
     Route: 048
     Dates: start: 20051024, end: 20051024

REACTIONS (2)
  - HYPERSOMNIA [None]
  - SOMNOLENCE [None]
